FAERS Safety Report 24571281 (Version 2)
Quarter: 2025Q2

REPORT INFORMATION
  Report Type: Report from Study
  Country: BR (occurrence: BR)
  Receive Date: 20241101
  Receipt Date: 20250415
  Transmission Date: 20250717
  Serious: No
  Sender: TAKEDA
  Company Number: BR-TAKEDA-2024TUS108408

PATIENT
  Age: 69 Year
  Sex: Male

DRUGS (1)
  1. VEDOLIZUMAB [Suspect]
     Active Substance: VEDOLIZUMAB
     Indication: Crohn^s disease

REACTIONS (3)
  - Inappropriate schedule of product administration [Unknown]
  - Illness [Unknown]
  - Dysphonia [Unknown]

NARRATIVE: CASE EVENT DATE: 20241015
